FAERS Safety Report 4939153-5 (Version None)
Quarter: 2006Q1

REPORT INFORMATION
  Report Type: 
  Country: None (occurrence: None)
  Receive Date: 20060306
  Receipt Date: 20060220
  Transmission Date: 20060701
  Serious: Yes (Hospitalization)
  Sender: FDA-Public Use
  Company Number: B0413396A

PATIENT
  Age: 68 Year
  Sex: Female

DRUGS (2)
  1. PAXIL [Suspect]
     Indication: DEPRESSION
     Dosage: UNK / PER DAY / ORAL
     Route: 048
     Dates: start: 20030725, end: 20030728
  2. CO-CARELDOPA [Concomitant]

REACTIONS (4)
  - BRADYKINESIA [None]
  - CONDITION AGGRAVATED [None]
  - PARKINSONISM [None]
  - SEROTONIN SYNDROME [None]
